FAERS Safety Report 19006551 (Version 1)
Quarter: 2021Q1

REPORT INFORMATION
  Report Type: Spontaneous
  Country: US (occurrence: US)
  Receive Date: 20210312
  Receipt Date: 20210312
  Transmission Date: 20210420
  Serious: Yes (Hospitalization)
  Sender: FDA-Public Use
  Company Number: None

PATIENT
  Age: 72 Year
  Sex: Male
  Weight: 99.8 kg

DRUGS (4)
  1. METOPROLOL 25 MG BID [Concomitant]
  2. OMEPRAZOLE 20 MG QD [Concomitant]
  3. BAMLANIVIMAB. [Suspect]
     Active Substance: BAMLANIVIMAB
     Indication: COVID-19
     Dosage: ?          OTHER FREQUENCY:ONCE;?
     Route: 042
     Dates: start: 20210310, end: 20210310
  4. TADALAFIL 3 MG DAILY [Concomitant]

REACTIONS (6)
  - COVID-19 [None]
  - Nausea [None]
  - Pyrexia [None]
  - Vomiting [None]
  - Hypoxia [None]
  - Chills [None]

NARRATIVE: CASE EVENT DATE: 20210310
